FAERS Safety Report 4618371-X (Version None)
Quarter: 2005Q1

REPORT INFORMATION
  Report Type: 
  Country: None (occurrence: None)
  Receive Date: 20050323
  Receipt Date: 20050311
  Transmission Date: 20050727
  Serious: Yes (Other)
  Sender: FDA-Public Use
  Company Number: 2005038546

PATIENT
  Sex: Female

DRUGS (2)
  1. DEPO-PROVERA [Suspect]
     Indication: CONTRACEPTION
     Dosage: 50 MG (50 MG, FIRST AND LAST INJECTION); SEE IMAGE
     Dates: start: 20041101, end: 20041101
  2. DEPO-PROVERA [Suspect]
     Indication: CONTRACEPTION
     Dosage: 50 MG (50 MG, FIRST AND LAST INJECTION); SEE IMAGE
     Dates: start: 20050125, end: 20050125

REACTIONS (7)
  - ABDOMINAL DISTENSION [None]
  - AMENORRHOEA [None]
  - ASTHENIA [None]
  - BREAST OEDEMA [None]
  - COLD SWEAT [None]
  - HAEMORRHAGE [None]
  - SYNCOPE [None]
